FAERS Safety Report 19681382 (Version 1)
Quarter: 2021Q3

REPORT INFORMATION
  Report Type: Spontaneous
  Country: US (occurrence: US)
  Receive Date: 20210810
  Receipt Date: 20210810
  Transmission Date: 20211014
  Serious: No
  Sender: FDA-Public Use
  Company Number: US-IGSA-BIG0013545

PATIENT
  Sex: Male
  Weight: 99.8 kg

DRUGS (8)
  1. PROPRANOLOL [Concomitant]
     Active Substance: PROPRANOLOL HYDROCHLORIDE
     Dosage: 20 MILLIGRAM
  2. FLONASE [Concomitant]
     Active Substance: FLUTICASONE PROPIONATE
  3. MINOCYCLINE [Concomitant]
     Active Substance: MINOCYCLINE HYDROCHLORIDE
     Dosage: 100 MILLIGRAM
  4. GAMUNEX?C [Suspect]
     Active Substance: HUMAN IMMUNOGLOBULIN G
     Indication: IMMUNODEFICIENCY COMMON VARIABLE
     Dosage: 15 GRAM, Q.WK.
     Route: 058
     Dates: start: 202102
  5. CIMETIDINE [Concomitant]
     Active Substance: CIMETIDINE
     Dosage: 800 MILLIGRAM
  6. XYZAL ALLERGY 24HR [Concomitant]
     Active Substance: LEVOCETIRIZINE DIHYDROCHLORIDE
     Dosage: 5 MILLIGRAM
  7. CEFDINIR. [Concomitant]
     Active Substance: CEFDINIR
     Dosage: 300 MILLIGRAM
  8. PROCHLORPERAZINE. [Concomitant]
     Active Substance: PROCHLORPERAZINE
     Dosage: 10 MILLIGRAM

REACTIONS (3)
  - Headache [Recovered/Resolved]
  - Infusion site swelling [Recovered/Resolved]
  - Migraine [Recovered/Resolved]
